FAERS Safety Report 8956610 (Version 1)
Quarter: 2012Q4

REPORT INFORMATION
  Report Type: 
  Country: DE (occurrence: DE)
  Receive Date: 20121210
  Receipt Date: 20121210
  Transmission Date: 20130627
  Serious: Yes (Death, Congenital Anomaly, Other)
  Sender: FDA-Public Use
  Company Number: DE-TEVA-373163GER

PATIENT

DRUGS (2)
  1. AMITRIPTYLINE [Suspect]
     Route: 064
  2. CELESTAN [Concomitant]
     Route: 064

REACTIONS (2)
  - Foetal death [Fatal]
  - Foetal growth restriction [Not Recovered/Not Resolved]
